FAERS Safety Report 12262514 (Version 1)
Quarter: 2016Q2

REPORT INFORMATION
  Report Type: Spontaneous
  Country: PL (occurrence: PL)
  Receive Date: 20160413
  Receipt Date: 20160413
  Transmission Date: 20160815
  Serious: Yes (Other)
  Sender: FDA-Public Use
  Company Number: PL-ROCHE-1573367

PATIENT
  Age: 76 Year
  Sex: Male
  Weight: 100 kg

DRUGS (5)
  1. GAZYVARO [Suspect]
     Active Substance: OBINUTUZUMAB
     Dosage: DAY 2
     Route: 042
     Dates: start: 20150429, end: 20150429
  2. GAZYVARO [Suspect]
     Active Substance: OBINUTUZUMAB
     Indication: CHRONIC LYMPHOCYTIC LEUKAEMIA
     Dosage: DAY 1
     Route: 042
     Dates: start: 20150428, end: 20150428
  3. CHLORAMBUCIL [Suspect]
     Active Substance: CHLORAMBUCIL
     Indication: CHRONIC LYMPHOCYTIC LEUKAEMIA
     Route: 048
     Dates: start: 20150429, end: 20150922
  4. INSULIN [Concomitant]
     Active Substance: INSULIN NOS
     Indication: DIABETES MELLITUS
     Dosage: DOSE ACCORDING TO PROFILE
     Route: 058
     Dates: start: 20150428, end: 20150429
  5. GAZYVARO [Suspect]
     Active Substance: OBINUTUZUMAB
     Route: 042
     Dates: end: 20150922

REACTIONS (33)
  - Tumour lysis syndrome [Unknown]
  - Platelet count decreased [Recovering/Resolving]
  - Red cell distribution width increased [Recovered/Resolved]
  - Blood alkaline phosphatase increased [Recovered/Resolved]
  - Alanine aminotransferase increased [Recovered/Resolved]
  - Thrombocytopenia [Recovering/Resolving]
  - Anxiety [Recovered/Resolved]
  - Haemoglobin decreased [Recovered/Resolved]
  - Blood glucose increased [Recovering/Resolving]
  - Blood immunoglobulin M decreased [Recovering/Resolving]
  - Rales [Unknown]
  - Basophil count increased [Recovering/Resolving]
  - Blood immunoglobulin G decreased [Recovered/Resolved]
  - Hypotonia [Recovered/Resolved]
  - Monocyte count increased [Recovering/Resolving]
  - Gamma-glutamyltransferase increased [Recovering/Resolving]
  - Aspartate aminotransferase increased [Recovered/Resolved]
  - Protein total decreased [Recovered/Resolved]
  - Blood calcium decreased [Recovered/Resolved]
  - Pyrexia [Recovered/Resolved]
  - Mean cell haemoglobin concentration increased [Recovered/Resolved]
  - Blood creatinine increased [Recovering/Resolving]
  - Beta 2 microglobulin increased [Recovering/Resolving]
  - Blood lactate dehydrogenase increased [Recovering/Resolving]
  - Haematocrit decreased [Recovered/Resolved]
  - Blood urea increased [Recovering/Resolving]
  - Blood bilirubin increased [Recovered/Resolved]
  - Blood albumin decreased [Recovered/Resolved]
  - Weight increased [Unknown]
  - Chills [Recovered/Resolved]
  - Fatigue [Recovered/Resolved]
  - Eosinophil count increased [Recovering/Resolving]
  - Blood sodium decreased [Recovered/Resolved]

NARRATIVE: CASE EVENT DATE: 20150428
